FAERS Safety Report 4384530-7 (Version None)
Quarter: 2004Q2

REPORT INFORMATION
  Report Type: 
  Country: None (occurrence: None)
  Receive Date: 20040610
  Receipt Date: 20040416
  Transmission Date: 20050107
  Serious: Yes (Hospitalization)
  Sender: FDA-Public Use
  Company Number: A03200401192

PATIENT
  Age: 75 Year
  Sex: Female
  Weight: 62.1428 kg

DRUGS (15)
  1. ELOXATIN [Suspect]
     Indication: COLORECTAL CANCER
     Dosage: 60 MG OTHER - INTRAVENOUS NOS
     Route: 042
     Dates: start: 20040326, end: 20040326
  2. ELOXATIN [Suspect]
     Indication: METASTASES TO LIVER
     Dosage: 60 MG OTHER - INTRAVENOUS NOS
     Route: 042
     Dates: start: 20040326, end: 20040326
  3. FLUOROURACIL [Concomitant]
  4. LEUCOVORIN [Concomitant]
  5. DEXAMETHASONE [Concomitant]
  6. ATORVASTATIN CALCIUM [Concomitant]
  7. HYDROCHLOROTHIAZIDE [Concomitant]
  8. NIFEDIPINE [Concomitant]
  9. FUROSEMIDE [Concomitant]
  10. ZOLPIDEM TARTRATE [Concomitant]
  11. HYDROCODONE + ACETAMINOPHEN [Concomitant]
  12. MIRTAZAPINE [Concomitant]
  13. METOCLOPRAMIDE [Concomitant]
  14. RAMIPRIL [Concomitant]
  15. HYDRALAZINE [Concomitant]

REACTIONS (1)
  - BLOOD GLUCOSE INCREASED [None]
